FAERS Safety Report 6666096-1 (Version None)
Quarter: 2010Q1

REPORT INFORMATION
  Report Type: 
  Country: None (occurrence: None)
  Receive Date: 20100330
  Receipt Date: 20100315
  Transmission Date: 20100710
  Serious: Yes (Other)
  Sender: FDA-Public Use
  Company Number: AUR-APL-2010-00796

PATIENT
  Age: 61 Year
  Sex: Female

DRUGS (1)
  1. ALENDRONATE SODIUM [Suspect]
     Indication: OSTEOPOROSIS

REACTIONS (13)
  - ADVERSE EVENT [None]
  - BLOOD PHOSPHORUS [None]
  - BONE OPERATION [None]
  - DEBRIDEMENT [None]
  - DIABETES MELLITUS [None]
  - FISTULA [None]
  - INFECTION [None]
  - MULTIPLE SCLEROSIS [None]
  - OSTEOMYELITIS [None]
  - OSTEONECROSIS [None]
  - OSTEOPOROSIS [None]
  - PAIN [None]
  - SUPERINFECTION [None]
